FAERS Safety Report 8759286 (Version 2)
Quarter: 2012Q4

REPORT INFORMATION
  Report Type: 
  Country: DE (occurrence: DE)
  Receive Date: 20120829
  Receipt Date: 20120829
  Transmission Date: 20130627
  Serious: Yes (Hospitalization, Other)
  Sender: FDA-Public Use
  Company Number: DE-EISAI INC-E7389-02824-SPO-DE

PATIENT
  Age: 67 Year
  Sex: Female
  Weight: 65 kg

DRUGS (3)
  1. HALAVEN [Suspect]
     Indication: METASTATIC BREAST CANCER
     Route: 041
     Dates: start: 20120801, end: 20120801
  2. PAMIDRONIC ACID [Concomitant]
     Route: 042
  3. HYDROMORPHON [Concomitant]
     Route: 048

REACTIONS (3)
  - Pancytopenia [Recovering/Resolving]
  - Stomatitis [Recovering/Resolving]
  - Pain in extremity [Unknown]
